FAERS Safety Report 18230075 (Version 1)
Quarter: 2020Q3

REPORT INFORMATION
  Report Type: Spontaneous
  Country: US (occurrence: US)
  Receive Date: 20200903
  Receipt Date: 20200903
  Transmission Date: 20201103
  Serious: Yes (Hospitalization, Other)
  Sender: FDA-Public Use
  Company Number: US-BRISTOL-MYERS SQUIBB COMPANY-BMS-2020-071752

PATIENT
  Age: 50 Year
  Sex: Female
  Weight: 86.17 kg

DRUGS (3)
  1. COUMADIN [Suspect]
     Active Substance: WARFARIN SODIUM
     Indication: ABDOMINOPLASTY
  2. COUMADIN [Suspect]
     Active Substance: WARFARIN SODIUM
     Indication: HYSTERECTOMY
     Dosage: 75 MILLIGRAM, QD
     Route: 065
     Dates: start: 200112, end: 200112
  3. ELMIRON [Concomitant]
     Active Substance: PENTOSAN POLYSULFATE SODIUM
     Indication: PRODUCT USED FOR UNKNOWN INDICATION
     Dosage: 2?3 TIMES A DAY
     Route: 065

REACTIONS (1)
  - Haemorrhage [Unknown]

NARRATIVE: CASE EVENT DATE: 200112
